FAERS Safety Report 20834474 (Version 1)
Quarter: 2022Q2

REPORT INFORMATION
  Report Type: Other
  Country: AU (occurrence: AU)
  Receive Date: 20220516
  Receipt Date: 20220516
  Transmission Date: 20220721
  Serious: Yes (Other)
  Sender: FDA-Public Use
  Company Number: AU-BioDelivery Sciences International-2022BDSI0196

PATIENT
  Age: 38 Year
  Sex: Male

DRUGS (2)
  1. BUNAVAIL [Suspect]
     Active Substance: BUPRENORPHINE HYDROCHLORIDE\NALOXONE HYDROCHLORIDE
     Indication: Drug use disorder
     Dosage: UNKNOWN, UNKNOWN
     Route: 065
  2. ARIPIPRAZOLE [Concomitant]
     Active Substance: ARIPIPRAZOLE
     Indication: Bipolar disorder
     Dosage: UNKNOWN, UNKNOWN
     Route: 065

REACTIONS (2)
  - Maculopathy [Recovered/Resolved with Sequelae]
  - Altered state of consciousness [Recovered/Resolved]
